FAERS Safety Report 9780104 (Version 1)
Quarter: 2013Q4

REPORT INFORMATION
  Report Type: Spontaneous
  Country: US (occurrence: US)
  Receive Date: 20131223
  Receipt Date: 20131223
  Transmission Date: 20140711
  Serious: Yes (Other)
  Sender: FDA-Public Use
  Company Number: US-ELI_LILLY_AND_COMPANY-US201312004900

PATIENT
  Sex: Male
  Weight: 88.44 kg

DRUGS (10)
  1. CIALIS [Suspect]
     Indication: ERECTILE DYSFUNCTION
     Dosage: 20 MG, PRN
     Route: 065
  2. HYDRALAZINE [Concomitant]
     Dosage: 25 MG, BID
  3. LEVOTHYROXINE [Concomitant]
     Dosage: 75 DF, QD
  4. LOSARTAN/HYDROCHLOORTHIAZIDE [Concomitant]
     Dosage: 12.5 MG, UNKNOWN
  5. ATORVASTATIN [Concomitant]
     Dosage: 20 MG, UNKNOWN
  6. LASIX [Concomitant]
  7. LANTUS [Concomitant]
     Indication: DIABETES MELLITUS
  8. NOVOLOG [Concomitant]
     Indication: DIABETES MELLITUS
  9. METFORMIN [Concomitant]
     Dosage: 1 DF, BID
  10. CARVEDILOL [Concomitant]

REACTIONS (1)
  - Visual impairment [Not Recovered/Not Resolved]
